FAERS Safety Report 10263395 (Version 2)
Quarter: 2014Q3

REPORT INFORMATION
  Report Type: Spontaneous
  Country: JP (occurrence: JP)
  Receive Date: 20140626
  Receipt Date: 20140702
  Transmission Date: 20150326
  Serious: Yes (Death, Hospitalization, Other)
  Sender: FDA-Public Use
  Company Number: PHHY2014JP075327

PATIENT
  Age: 77 Year
  Sex: Male

DRUGS (5)
  1. TEGAFUR W/URACIL [Suspect]
     Active Substance: TEGAFUR\URACIL
     Dosage: 400 MG/DAY
  2. TEGAFUR W/URACIL [Suspect]
     Active Substance: TEGAFUR\URACIL
     Indication: COLON CANCER STAGE III
     Dosage: 500 MG/DAY
     Route: 048
  3. FOLINIC ACID [Suspect]
     Active Substance: LEUCOVORIN
     Indication: COLON CANCER STAGE III
     Dosage: 75 MG/DAY
     Route: 048
  4. SULFASALAZINE. [Suspect]
     Active Substance: SULFASALAZINE
     Indication: GASTROINTESTINAL INFLAMMATION
  5. PREDNISOLONE. [Suspect]
     Active Substance: PREDNISOLONE
     Indication: GASTROINTESTINAL INFLAMMATION

REACTIONS (17)
  - Colon cancer stage III [Fatal]
  - Diarrhoea [Recovered/Resolved]
  - Intestinal ulcer [Unknown]
  - Gastrointestinal inflammation [Unknown]
  - Clostridium difficile colitis [Recovered/Resolved]
  - Oedema [Recovered/Resolved]
  - Fatigue [Recovered/Resolved]
  - Gastrointestinal mucosal disorder [Unknown]
  - Metastases to liver [Unknown]
  - Decreased appetite [Recovered/Resolved]
  - Gastroenteritis bacterial [Unknown]
  - Hypoalbuminaemia [Recovered/Resolved]
  - Pyrexia [Recovered/Resolved]
  - Hyperplasia [Recovered/Resolved]
  - Metastases to large intestine [Unknown]
  - Drug ineffective [Unknown]
  - Large intestine polyp [Unknown]
